FAERS Safety Report 11399027 (Version 1)
Quarter: 2015Q3

REPORT INFORMATION
  Report Type: Spontaneous
  Country: US (occurrence: None)
  Receive Date: 20150819
  Receipt Date: 20150819
  Transmission Date: 20151125
  Serious: Yes (Disabling)
  Sender: FDA-Public Use
  Company Number: None

PATIENT
  Age: 20 Year
  Sex: Female
  Weight: 73.48 kg

DRUGS (3)
  1. GABAPENTIN. [Concomitant]
     Active Substance: GABAPENTIN
  2. BUPROPION XL [Concomitant]
     Active Substance: BUPROPION
  3. PLAN B ONE-STEP [Suspect]
     Active Substance: LEVONORGESTREL
     Indication: POST COITAL CONTRACEPTION
     Dosage: 1 PILL
     Route: 048
     Dates: start: 20120422

REACTIONS (7)
  - Weight decreased [None]
  - Drug ineffective [None]
  - Haemorrhoids [None]
  - Diarrhoea [None]
  - Change of bowel habit [None]
  - Irritable bowel syndrome [None]
  - Panic reaction [None]

NARRATIVE: CASE EVENT DATE: 20120422
